FAERS Safety Report 17515735 (Version 1)
Quarter: 2020Q1

REPORT INFORMATION
  Report Type: Spontaneous
  Country: US (occurrence: US)
  Receive Date: 20200309
  Receipt Date: 20200309
  Transmission Date: 20200409
  Serious: Yes (Hospitalization)
  Sender: FDA-Public Use
  Company Number: US-NOVOPROD-716184

PATIENT
  Age: 56 Year
  Sex: Male

DRUGS (1)
  1. OZEMPIC [Suspect]
     Active Substance: SEMAGLUTIDE
     Indication: TYPE 2 DIABETES MELLITUS
     Dosage: 0.25 MG
     Route: 058
     Dates: start: 20191120, end: 201912

REACTIONS (4)
  - Visual impairment [Recovered/Resolved]
  - Retinal artery occlusion [Not Recovered/Not Resolved]
  - Visual impairment [Recovered/Resolved]
  - Xanthopsia [Recovered/Resolved]

NARRATIVE: CASE EVENT DATE: 201912
